FAERS Safety Report 8066710-2 (Version None)
Quarter: 2012Q1

REPORT INFORMATION
  Report Type: 
  Country: None (occurrence: None)
  Receive Date: 20120124
  Receipt Date: 20120117
  Transmission Date: 20120608
  Serious: Yes (Death, Other)
  Sender: FDA-Public Use
  Company Number: JP-ELI_LILLY_AND_COMPANY-JP201111001095

PATIENT
  Sex: Male
  Weight: 49 kg

DRUGS (10)
  1. CISPLATIN [Concomitant]
     Indication: LUNG ADENOCARCINOMA STAGE IV
     Dosage: 110 MG, UNK
     Route: 042
     Dates: start: 20110615, end: 20110615
  2. GRANISETRON [Concomitant]
     Indication: PROPHYLAXIS
     Dosage: 3 MG, UNK
     Route: 042
     Dates: start: 20110615, end: 20110616
  3. BARACLUDE [Concomitant]
     Dosage: 0.5 MG, QD
     Route: 048
     Dates: start: 20110614
  4. METHYCOBAL [Concomitant]
     Dosage: 1000 UG, QD
     Route: 030
     Dates: start: 20110609, end: 20110609
  5. ALIMTA [Suspect]
     Indication: LUNG ADENOCARCINOMA STAGE IV
     Dosage: 700 MG, UNK
     Route: 042
     Dates: start: 20110615, end: 20110615
  6. ALBUMIN TANNATE [Concomitant]
     Dosage: 1.5 G, TID
     Route: 048
     Dates: start: 20110528
  7. PRIMPERAN TAB [Concomitant]
     Indication: PROPHYLAXIS
     Dosage: 10 MG, UNK
     Route: 042
     Dates: start: 20110615, end: 20110617
  8. ADSORBIN [Concomitant]
     Dosage: 1 G, TID
     Route: 048
     Dates: start: 20110528
  9. PANVITAN [Concomitant]
     Dosage: 1 G, QD
     Route: 048
     Dates: start: 20110609
  10. DEXAMETHASONE SODIUM PHOSPHATE [Concomitant]
     Indication: PROPHYLAXIS
     Dosage: UNK
     Route: 042
     Dates: start: 20110615, end: 20110617

REACTIONS (2)
  - NEOPLASM PROGRESSION [None]
  - ILEUS PARALYTIC [None]
